FAERS Safety Report 16397516 (Version 1)
Quarter: 2019Q2

REPORT INFORMATION
  Report Type: Spontaneous
  Country: US (occurrence: US)
  Receive Date: 20190606
  Receipt Date: 20190606
  Transmission Date: 20190711
  Serious: Yes (Other)
  Sender: FDA-Public Use
  Company Number: US-SUN PHARMACEUTICAL INDUSTRIES LTD-2019R1-209830

PATIENT
  Age: 17 Year
  Sex: Female

DRUGS (1)
  1. CLONIDINE. [Suspect]
     Active Substance: CLONIDINE
     Indication: PRODUCT USED FOR UNKNOWN INDICATION
     Dosage: 160 DF
     Route: 048

REACTIONS (8)
  - Overdose [Unknown]
  - Pulmonary oedema [Unknown]
  - Troponin T increased [Unknown]
  - Mental status changes [Unknown]
  - Systolic dysfunction [Unknown]
  - Ejection fraction decreased [Unknown]
  - Hypertension [Unknown]
  - Hypotension [Unknown]
